FAERS Safety Report 8822485 (Version 1)
Quarter: 2012Q4

REPORT INFORMATION
  Report Type: 
  Country: AT (occurrence: AT)
  Receive Date: 20121003
  Receipt Date: 20121003
  Transmission Date: 20130627
  Serious: Yes (Other)
  Sender: FDA-Public Use
  Company Number: AT-B.I. PHARMACEUTICALS,INC./RIDGEFIELD-2012-AP-00793AP

PATIENT
  Age: 54 Year
  Sex: Female
  Weight: 72 kg

DRUGS (4)
  1. TRAJENTA [Suspect]
     Indication: DIABETES MELLITUS
     Dosage: 5 mg
     Dates: start: 20120701, end: 20120829
  2. COSOPT [Concomitant]
     Indication: GLAUCOMA
     Dosage: 2 RT
  3. TRAVATAN [Concomitant]
     Indication: GLAUCOMA
     Dosage: 1 RT
  4. GLUCOPHAGE [Concomitant]
     Indication: DIABETES MELLITUS
     Dosage: 2000 mg

REACTIONS (4)
  - Pruritus generalised [Not Recovered/Not Resolved]
  - Drug eruption [Not Recovered/Not Resolved]
  - Dermatitis allergic [Not Recovered/Not Resolved]
  - Rash generalised [Not Recovered/Not Resolved]
